FAERS Safety Report 11972891 (Version 3)
Quarter: 2016Q2

REPORT INFORMATION
  Report Type: Report from Study
  Country: BR (occurrence: BR)
  Receive Date: 20160128
  Receipt Date: 20160506
  Transmission Date: 20160815
  Serious: Yes (Other)
  Sender: FDA-Public Use
  Company Number: BR-ABBVIE-16K-020-1544584-00

PATIENT
  Age: 43 Year
  Sex: Female
  Weight: 54 kg

DRUGS (5)
  1. ATROVERAN [Concomitant]
     Indication: PAIN
     Route: 048
     Dates: start: 2013
  2. ATROVERAN [Concomitant]
     Indication: ABDOMINAL PAIN
  3. BUSCOPAN [Concomitant]
     Active Substance: BUTYLSCOPOLAMINE BROMIDE
     Indication: ABDOMINAL PAIN
     Route: 048
     Dates: start: 2013
  4. HUMIRA [Suspect]
     Active Substance: ADALIMUMAB
     Indication: CROHN^S DISEASE
     Route: 058
     Dates: start: 20160118
  5. MESACOL [Concomitant]
     Active Substance: MESALAMINE
     Indication: PROCTALGIA
     Route: 054
     Dates: start: 2013

REACTIONS (13)
  - Myalgia [Recovering/Resolving]
  - Proctalgia [Recovered/Resolved]
  - Abdominal pain [Unknown]
  - Pain [Recovered/Resolved]
  - Discomfort [Recovered/Resolved]
  - Limb discomfort [Recovered/Resolved]
  - Hypophagia [Unknown]
  - Decreased appetite [Unknown]
  - Fatigue [Recovered/Resolved]
  - Drug ineffective [Not Recovered/Not Resolved]
  - Abdominal pain [Recovered/Resolved]
  - Pain [Unknown]
  - Abdominal distension [Not Recovered/Not Resolved]

NARRATIVE: CASE EVENT DATE: 2016
